FAERS Safety Report 18306725 (Version 1)
Quarter: 2020Q3

REPORT INFORMATION
  Report Type: Spontaneous
  Country: NO (occurrence: NO)
  Receive Date: 20200924
  Receipt Date: 20200924
  Transmission Date: 20201103
  Serious: Yes (Life-Threatening, Hospitalization)
  Sender: FDA-Public Use
  Company Number: NO-PFIZER INC-2020367765

PATIENT
  Age: 74 Year
  Sex: Male

DRUGS (11)
  1. PEPCID [Concomitant]
     Active Substance: FAMOTIDINE
     Dosage: 10 MG
  2. IMODIUM [Concomitant]
     Active Substance: LOPERAMIDE HYDROCHLORIDE
  3. OPATANOL [Concomitant]
     Active Substance: OLOPATADINE
  4. SERETIDE [Concomitant]
     Active Substance: FLUTICASONE PROPIONATE\SALMETEROL XINAFOATE
  5. AFIPRAN [Concomitant]
     Active Substance: METOCLOPRAMIDE HYDROCHLORIDE
  6. SPIRIVA [Concomitant]
     Active Substance: TIOTROPIUM BROMIDE MONOHYDRATE
  7. VENTOLINE [SALBUTAMOL SULFATE] [Concomitant]
     Active Substance: ALBUTEROL SULFATE
  8. VIZIMPRO [Suspect]
     Active Substance: DACOMITINIB
     Indication: LUNG ADENOCARCINOMA
     Dosage: 30 MG (1 TABLET), 1X/DAY
     Route: 048
     Dates: start: 20200619, end: 20200819
  9. ATROVENT [Concomitant]
     Active Substance: IPRATROPIUM BROMIDE
  10. FRAGMIN [Concomitant]
     Active Substance: DALTEPARIN SODIUM
  11. FELODIPIN HEXAL [Concomitant]
     Active Substance: FELODIPINE

REACTIONS (5)
  - Paronychia [Recovering/Resolving]
  - Epidermolysis [Recovering/Resolving]
  - Superinfection [Recovering/Resolving]
  - Erysipelas [Recovering/Resolving]
  - Rash [Recovering/Resolving]

NARRATIVE: CASE EVENT DATE: 202008
